FAERS Safety Report 21230773 (Version 3)
Quarter: 2023Q1

REPORT INFORMATION
  Report Type: Report from Study
  Country: US (occurrence: US)
  Receive Date: 20220819
  Receipt Date: 20230131
  Transmission Date: 20230417
  Serious: Yes (Hospitalization)
  Sender: FDA-Public Use
  Company Number: US-ABBVIE-22K-163-4509182-00

PATIENT
  Age: 57 Year
  Sex: Female

DRUGS (3)
  1. RINVOQ [Suspect]
     Active Substance: UPADACITINIB
     Indication: Rheumatoid arthritis
     Dosage: FORM STRENGTH: 15 MILLIGRAM
     Route: 048
     Dates: start: 202205, end: 20220806
  2. RINVOQ [Suspect]
     Active Substance: UPADACITINIB
     Indication: Rheumatoid arthritis
     Dosage: FORM STRENGTH: 15 MILLIGRAM
     Route: 048
     Dates: start: 20220808
  3. RINVOQ [Suspect]
     Active Substance: UPADACITINIB
     Indication: Rheumatoid arthritis
     Route: 048

REACTIONS (13)
  - Pancreatitis [Recovered/Resolved]
  - Pain [Unknown]
  - Joint stiffness [Recovering/Resolving]
  - Contusion [Unknown]
  - Rheumatoid arthritis [Unknown]
  - Musculoskeletal stiffness [Recovering/Resolving]
  - Joint stiffness [Unknown]
  - General physical condition abnormal [Not Recovered/Not Resolved]
  - Skin disorder [Unknown]
  - Joint range of motion decreased [Unknown]
  - Dizziness [Unknown]
  - Skin disorder [Unknown]
  - Nasopharyngitis [Recovered/Resolved]

NARRATIVE: CASE EVENT DATE: 20220501
